FAERS Safety Report 6087770-4 (Version None)
Quarter: 2009Q1

REPORT INFORMATION
  Report Type: 
  Country: None (occurrence: None)
  Receive Date: 20090223
  Receipt Date: 20090211
  Transmission Date: 20090719
  Serious: Yes (Other)
  Sender: FDA-Public Use
  Company Number: ES-ELI_LILLY_AND_COMPANY-ES200901004823

PATIENT
  Age: 8 Year
  Sex: Male

DRUGS (6)
  1. STRATTERA [Suspect]
     Indication: ATTENTION DEFICIT/HYPERACTIVITY DISORDER
     Dosage: 25 MG, DAILY (1/D)
     Route: 048
     Dates: start: 20081001, end: 20090101
  2. STRATTERA [Suspect]
     Dosage: 50 MG, (2 X 25 MG IN THE MORNING)
     Route: 048
     Dates: start: 20090101
  3. STRATTERA [Suspect]
     Dosage: 40 MG, DAILY (1/D)
     Route: 048
     Dates: start: 20090101
  4. CONCERTA [Concomitant]
     Dosage: 36 MG, UNKNOWN
     Route: 065
  5. CONCERTA [Concomitant]
     Dosage: 18 MG, UNKNOWN
     Route: 065
     Dates: start: 20081001
  6. RUBIFEN [Concomitant]
     Dosage: 10 MG, EACH MORNING
     Route: 065
     Dates: start: 20081001

REACTIONS (6)
  - BLOOD PRESSURE INCREASED [None]
  - DYSPHAGIA [None]
  - FLUSHING [None]
  - NERVOUSNESS [None]
  - PALPITATIONS [None]
  - TACHYCARDIA [None]
